FAERS Safety Report 6968504-5 (Version None)
Quarter: 2010Q3

REPORT INFORMATION
  Report Type: 
  Country: None (occurrence: None)
  Receive Date: 20100907
  Receipt Date: 20100827
  Transmission Date: 20110219
  Serious: No
  Sender: FDA-Public Use
  Company Number: US-JNJFOC-20100900828

PATIENT
  Sex: Male
  Weight: 107.96 kg

DRUGS (9)
  1. FENTANYL CITRATE [Suspect]
     Indication: PRODUCT USED FOR UNKNOWN INDICATION
     Route: 062
  2. FENTANYL CITRATE [Suspect]
     Indication: CANCER PAIN
     Route: 062
  3. SIMVASTATIN [Concomitant]
     Indication: BLOOD CHOLESTEROL INCREASED
     Route: 048
  4. CARDIZEM [Concomitant]
     Indication: HYPERTENSION
     Route: 048
  5. ASPIRIN [Concomitant]
     Indication: PROPHYLAXIS
     Route: 048
  6. FLUOXETINE [Concomitant]
     Indication: DEPRESSION
     Route: 048
  7. LUPRON [Concomitant]
     Indication: NEOPLASM MALIGNANT
     Route: 030
  8. ZOMETA [Concomitant]
     Indication: NEOPLASM MALIGNANT
     Route: 042
  9. OXYCODONE [Concomitant]
     Indication: PAIN
     Dosage: 1-2 TABLET
     Route: 048

REACTIONS (1)
  - WRONG TECHNIQUE IN DRUG USAGE PROCESS [None]
